FAERS Safety Report 13771100 (Version 1)
Quarter: 2017Q3

REPORT INFORMATION
  Report Type: Spontaneous
  Country: JP (occurrence: JP)
  Receive Date: 20170720
  Receipt Date: 20170720
  Transmission Date: 20171127
  Serious: Yes (Other)
  Sender: FDA-Public Use
  Company Number: JP-SUN PHARMACEUTICAL INDUSTRIES LTD-2016R1-117356

PATIENT
  Age: 36 Year
  Sex: Female

DRUGS (2)
  1. INDOMETHACIN. [Suspect]
     Active Substance: INDOMETHACIN
     Indication: MYCOSIS FUNGOIDES
     Dosage: 100 MG, DAILY
     Route: 048
  2. INDOMETHACIN. [Suspect]
     Active Substance: INDOMETHACIN
     Indication: EOSINOPHILIC PUSTULAR FOLLICULITIS

REACTIONS (2)
  - Disease recurrence [Unknown]
  - Drug eruption [Unknown]
